FAERS Safety Report 4492103-0 (Version None)
Quarter: 2004Q4

REPORT INFORMATION
  Report Type: 
  Country: None (occurrence: None)
  Receive Date: 20041101
  Receipt Date: 20041019
  Transmission Date: 20050328
  Serious: Yes (Hospitalization, Other)
  Sender: FDA-Public Use
  Company Number: 2004080377

PATIENT
  Age: 51 Year
  Sex: Female

DRUGS (11)
  1. LIPITOR [Suspect]
     Indication: ILL-DEFINED DISORDER
     Dosage: 250 MG (125 MG, 2 IN 1 D), ORAL
     Route: 048
     Dates: start: 20030301, end: 20040601
  2. TRACLEER [Suspect]
     Indication: PULMONARY HYPERTENSION
     Dosage: 250 MG (125 MG, 2 IN 1 D), ORAL
     Route: 048
     Dates: start: 20020428, end: 20040601
  3. PAROXETINE HCL [Concomitant]
  4. POTASSIUM CHLORIDE [Concomitant]
  5. SILDENAFIL CITRATE (SILDENAFIL CITRATE) [Concomitant]
  6. LEVOTHYROXINE SODIUM [Concomitant]
  7. QUETIAPINE FUMARATE (QUETIAPINE FUMARATE) [Concomitant]
  8. ANOVLAR (ETHINYLESTRADIOL, NORETHISTERONE ACETATE) [Concomitant]
  9. TORSEMIDE [Concomitant]
  10. RANITIDINE HYDROCHLORIDE [Concomitant]
  11. AMLODIPINE BESYLATE [Concomitant]

REACTIONS (4)
  - BARRETT'S OESOPHAGUS [None]
  - HEPATITIS ACUTE [None]
  - OESOPHAGITIS [None]
  - PAIN IN EXTREMITY [None]
